FAERS Safety Report 13428084 (Version 2)
Quarter: 2017Q2

REPORT INFORMATION
  Report Type: Other
  Country: JP (occurrence: JP)
  Receive Date: 20170411
  Receipt Date: 20170504
  Transmission Date: 20170830
  Serious: Yes (Hospitalization)
  Sender: FDA-Public Use
  Company Number: JP-ACTELION-A-CH2016-138863

PATIENT
  Age: 75 Year
  Sex: Female

DRUGS (8)
  1. PREDNISOLONE. [Concomitant]
     Active Substance: PREDNISOLONE
  2. ALDACTONE A [Concomitant]
     Active Substance: SPIRONOLACTONE
  3. JANUVIA [Concomitant]
     Active Substance: SITAGLIPTIN PHOSPHATE
  4. LYRICA [Concomitant]
     Active Substance: PREGABALIN
  5. OPSUMIT [Suspect]
     Active Substance: MACITENTAN
     Indication: PULMONARY HYPERTENSION
     Dosage: 10 MG, QD
     Route: 048
     Dates: start: 20151218, end: 201603
  6. OPSUMIT [Suspect]
     Active Substance: MACITENTAN
     Dosage: 5 MG, QD
     Route: 048
     Dates: start: 20160317
  7. DIART [Concomitant]
     Active Substance: AZOSEMIDE
  8. OXYGEN. [Concomitant]
     Active Substance: OXYGEN

REACTIONS (5)
  - Left ventricular failure [Recovering/Resolving]
  - Pulmonary vascular resistance abnormality [Recovered/Resolved]
  - Oedema peripheral [Recovering/Resolving]
  - Oedema [Recovering/Resolving]
  - Dyspnoea [Recovering/Resolving]

NARRATIVE: CASE EVENT DATE: 201603
